FAERS Safety Report 15049565 (Version 1)
Quarter: 2018Q2

REPORT INFORMATION
  Report Type: Spontaneous
  Country: CA (occurrence: CA)
  Receive Date: 20180622
  Receipt Date: 20180622
  Transmission Date: 20180711
  Serious: Yes (Life-Threatening, Hospitalization, Disabling, Other)
  Sender: FDA-Public Use
  Company Number: CA-TEVA-2018-CA-909783

PATIENT
  Age: 30 Year
  Sex: Male
  Weight: 72.64 kg

DRUGS (7)
  1. HALOPERIDOL DECANOATE. [Suspect]
     Active Substance: HALOPERIDOL DECANOATE
     Route: 030
  2. ESCITALOPRAM [Concomitant]
     Active Substance: ESCITALOPRAM OXALATE
  3. ZOPICLONE [Concomitant]
     Active Substance: ZOPICLONE
  4. DEXEDRINE [Concomitant]
     Active Substance: DEXTROAMPHETAMINE SULFATE
  5. HALOPERIDOL. [Concomitant]
     Active Substance: HALOPERIDOL
  6. ATIVAN [Concomitant]
     Active Substance: LORAZEPAM
  7. OLANZAPINE. [Concomitant]
     Active Substance: OLANZAPINE

REACTIONS (13)
  - Anorgasmia [Recovering/Resolving]
  - Mean cell haemoglobin decreased [Recovering/Resolving]
  - Bronchospasm [Recovering/Resolving]
  - Drug screen positive [Recovering/Resolving]
  - Haematocrit decreased [Recovering/Resolving]
  - Haemoglobin decreased [Recovering/Resolving]
  - Red cell distribution width increased [Recovering/Resolving]
  - White blood cell count decreased [Recovering/Resolving]
  - Erectile dysfunction [Recovering/Resolving]
  - Leukopenia [Recovering/Resolving]
  - Drug metabolising enzyme decreased [Recovering/Resolving]
  - Mean cell volume decreased [Recovering/Resolving]
  - Muscle twitching [Recovering/Resolving]
